FAERS Safety Report 6262314-2 (Version None)
Quarter: 2009Q3

REPORT INFORMATION
  Report Type: 
  Country: None (occurrence: None)
  Receive Date: 20090701
  Receipt Date: 20090109
  Transmission Date: 20100115
  Serious: Yes (Hospitalization)
  Sender: FDA-Public Use
  Company Number: 180621USA

PATIENT
  Age: 84 Year
  Sex: Male

DRUGS (1)
  1. URSODEOXYCHOLIC ACID 300 MG CAPSULE (URSODEOXYCHOLIC ACID) [Suspect]
     Indication: CHOLELITHIASIS
     Dates: start: 20030101

REACTIONS (1)
  - NAUSEA [None]
